FAERS Safety Report 8918802 (Version 1)
Quarter: 2012Q4

REPORT INFORMATION
  Report Type: 
  Country: US (occurrence: US)
  Receive Date: 20121120
  Receipt Date: 20121120
  Transmission Date: 20130627
  Serious: No
  Sender: FDA-Public Use
  Company Number: US-ASTRAZENECA-2012SE21239

PATIENT
  Age: 56 Year
  Sex: Female

DRUGS (5)
  1. NEXIUM [Suspect]
     Route: 048
  2. METOPROLOL [Concomitant]
  3. AMOXICILLIN [Concomitant]
  4. BAYER ASPIRIN [Concomitant]
  5. LEVOTHYROXINE [Concomitant]

REACTIONS (5)
  - Dental caries [Unknown]
  - Toothache [Unknown]
  - Tachycardia [Unknown]
  - Hypothyroidism [Unknown]
  - Hypertension [Unknown]
